FAERS Safety Report 9313166 (Version 1)
Quarter: 2013Q2

REPORT INFORMATION
  Report Type: Spontaneous
  Country: US (occurrence: US)
  Receive Date: 20130528
  Receipt Date: 20130528
  Transmission Date: 20140414
  Serious: No
  Sender: FDA-Public Use
  Company Number: US-ABBOTT-13P-163-1057509-00

PATIENT
  Age: 66 Year
  Sex: Male
  Weight: 149.82 kg

DRUGS (1)
  1. ANDROGEL 1.62% [Suspect]
     Indication: BLOOD TESTOSTERONE DECREASED
     Dosage: 2 PUMPS
     Route: 061
     Dates: start: 201210, end: 201211

REACTIONS (2)
  - Blood testosterone decreased [Recovered/Resolved]
  - Fatigue [Not Recovered/Not Resolved]
